FAERS Safety Report 5084060-3 (Version None)
Quarter: 2006Q3

REPORT INFORMATION
  Report Type: 
  Country: None (occurrence: None)
  Receive Date: 20060820
  Receipt Date: 20060808
  Transmission Date: 20061208
  Serious: Yes (Death, Hospitalization)
  Sender: FDA-Public Use
  Company Number: FR-ABBOTT-06P-056-0340042-00

PATIENT
  Age: 85 Year
  Sex: Female

DRUGS (8)
  1. DEPAKENE [Suspect]
     Indication: EPILEPSY
     Route: 048
     Dates: start: 20060615, end: 20060630
  2. BROMAZEPAM [Suspect]
     Indication: AGITATION
     Route: 048
     Dates: start: 20060627, end: 20060627
  3. LISINOPRIL [Suspect]
     Indication: HYPERTENSION
     Route: 048
     Dates: end: 20060630
  4. FLUINDIONE [Suspect]
     Indication: ATRIAL FIBRILLATION
     Route: 048
     Dates: start: 20060615, end: 20060630
  5. FLUINDIONE [Suspect]
     Indication: ATRIAL FLUTTER
  6. DIGOXIN [Suspect]
     Indication: DRUG USE FOR UNKNOWN INDICATION
     Route: 048
     Dates: start: 20060625, end: 20060630
  7. RISPERIDONE [Suspect]
     Indication: NEUROSIS
     Route: 048
     Dates: start: 20060627, end: 20060627
  8. RISPERIDONE [Suspect]
     Indication: AGITATION

REACTIONS (10)
  - AGITATION [None]
  - ATRIAL FIBRILLATION [None]
  - CARDIAC FAILURE [None]
  - CONFUSIONAL STATE [None]
  - HYPOKALAEMIA [None]
  - PULMONARY CONGESTION [None]
  - PYREXIA [None]
  - PYURIA [None]
  - RENAL FAILURE [None]
  - TACHYARRHYTHMIA [None]
